FAERS Safety Report 18651527 (Version 4)
Quarter: 2021Q2

REPORT INFORMATION
  Report Type: Spontaneous
  Country: US (occurrence: US)
  Receive Date: 20201222
  Receipt Date: 20210625
  Transmission Date: 20210717
  Serious: No
  Sender: FDA-Public Use
  Company Number: NVSC2020US339624

PATIENT
  Sex: Female

DRUGS (1)
  1. ZOFRAN ODT [Suspect]
     Active Substance: ONDANSETRON HYDROCHLORIDE
     Indication: MORNING SICKNESS
     Dosage: UNK
     Route: 048
     Dates: start: 201204, end: 20121214

REACTIONS (6)
  - Injury [Unknown]
  - Dyspepsia [Unknown]
  - Oedema peripheral [Unknown]
  - Maternal exposure during pregnancy [Unknown]
  - Labour pain [Unknown]
  - Product use in unapproved indication [Unknown]
